FAERS Safety Report 9803446 (Version 1)
Quarter: 2014Q1

REPORT INFORMATION
  Report Type: Report from Study
  Country: US (occurrence: US)
  Receive Date: 20140108
  Receipt Date: 20140108
  Transmission Date: 20141002
  Serious: Yes (Hospitalization)
  Sender: FDA-Public Use
  Company Number: US-PURDUE-USA-2013-0109890

PATIENT
  Age: 46 Year
  Sex: Male

DRUGS (2)
  1. OXY CR TAB [Suspect]
     Indication: PRODUCT USED FOR UNKNOWN INDICATION
     Dosage: UNK
     Route: 048
     Dates: start: 2004
  2. OXY CR TAB [Suspect]
     Dosage: 80 MG, Q12H
     Route: 048
     Dates: start: 20131210

REACTIONS (2)
  - Pneumonia [Unknown]
  - H1N1 influenza [Unknown]
